FAERS Safety Report 7211050-4 (Version None)
Quarter: 2011Q1

REPORT INFORMATION
  Report Type: 
  Country: None (occurrence: None)
  Receive Date: 20110105
  Receipt Date: 20101228
  Transmission Date: 20110831
  Serious: Yes (Other)
  Sender: FDA-Public Use
  Company Number: JP-ABBOTT-10P-087-0693736-00

PATIENT
  Sex: Female
  Weight: 57.2 kg

DRUGS (9)
  1. UTEMERIN [Concomitant]
     Indication: PRODUCT USED FOR UNKNOWN INDICATION
     Dates: start: 20090502, end: 20090506
  2. THREENOFEN [Concomitant]
     Indication: PRODUCT USED FOR UNKNOWN INDICATION
     Dates: start: 20090519, end: 20090531
  3. LANDSEN [Concomitant]
     Indication: PRODUCT USED FOR UNKNOWN INDICATION
     Dates: start: 20090304, end: 20090412
  4. COCARL [Concomitant]
     Indication: PRODUCT USED FOR UNKNOWN INDICATION
     Dates: start: 20090304, end: 20090509
  5. MAGMITT [Concomitant]
     Indication: PRODUCT USED FOR UNKNOWN INDICATION
     Dates: start: 20090302, end: 20090418
  6. PENTAZOCINE LACTATE [Concomitant]
     Indication: PRODUCT USED FOR UNKNOWN INDICATION
     Dates: start: 20090303, end: 20090419
  7. CEFZON [Suspect]
     Indication: ARTHRITIS BACTERIAL
     Route: 048
     Dates: start: 20090422, end: 20090701
  8. CEFZON [Suspect]
     Route: 048
     Dates: start: 20090715, end: 20090819
  9. PENMALIN [Concomitant]
     Indication: PRODUCT USED FOR UNKNOWN INDICATION
     Dates: start: 20090402, end: 20090518

REACTIONS (3)
  - THREATENED LABOUR [None]
  - IRON DEFICIENCY ANAEMIA [None]
  - DRUG EXPOSURE DURING PREGNANCY [None]
